APPROVED DRUG PRODUCT: CYCLOBENZAPRINE HYDROCHLORIDE
Active Ingredient: CYCLOBENZAPRINE HYDROCHLORIDE
Strength: 10MG
Dosage Form/Route: TABLET;ORAL
Application: A078722 | Product #003
Applicant: SUN PHARMACEUTICAL INDUSTRIES LTD
Approved: May 12, 2008 | RLD: No | RS: No | Type: DISCN